FAERS Safety Report 22075294 (Version 4)
Quarter: 2025Q3

REPORT INFORMATION
  Report Type: Spontaneous
  Country: CA (occurrence: CA)
  Receive Date: 20230308
  Receipt Date: 20250716
  Transmission Date: 20251020
  Serious: Yes (Hospitalization, Other)
  Sender: BRISTOL-MYERS SQUIBB COMPANY
  Company Number: CA-BRISTOL-MYERS SQUIBB COMPANY-2023-032436

PATIENT
  Age: 56 Year
  Sex: Female

DRUGS (123)
  1. ORENCIA [Suspect]
     Active Substance: ABATACEPT
     Indication: Rheumatoid arthritis
     Route: 042
  2. ORENCIA [Suspect]
     Active Substance: ABATACEPT
     Route: 042
  3. ORENCIA [Suspect]
     Active Substance: ABATACEPT
     Route: 042
  4. ORENCIA [Suspect]
     Active Substance: ABATACEPT
     Indication: Rheumatoid arthritis
     Route: 058
  5. ORENCIA [Suspect]
     Active Substance: ABATACEPT
     Route: 058
  6. ORENCIA [Suspect]
     Active Substance: ABATACEPT
     Route: 058
  7. ORENCIA [Suspect]
     Active Substance: ABATACEPT
     Indication: Rheumatoid arthritis
  8. ORENCIA [Suspect]
     Active Substance: ABATACEPT
  9. ORENCIA [Suspect]
     Active Substance: ABATACEPT
  10. ORENCIA [Suspect]
     Active Substance: ABATACEPT
  11. TRIAMCINOLONE ACETONIDE [Suspect]
     Active Substance: TRIAMCINOLONE ACETONIDE
     Indication: Product used for unknown indication
     Route: 014
  12. TRIAMCINOLONE ACETONIDE [Suspect]
     Active Substance: TRIAMCINOLONE ACETONIDE
     Route: 014
  13. TRIAMCINOLONE ACETONIDE [Suspect]
     Active Substance: TRIAMCINOLONE ACETONIDE
  14. ACTEMRA [Concomitant]
     Active Substance: TOCILIZUMAB
     Indication: Rheumatoid arthritis
     Route: 042
  15. ACTEMRA [Concomitant]
     Active Substance: TOCILIZUMAB
     Route: 042
  16. ACTEMRA [Concomitant]
     Active Substance: TOCILIZUMAB
     Route: 042
  17. ACTEMRA [Concomitant]
     Active Substance: TOCILIZUMAB
     Route: 042
  18. ACTEMRA [Concomitant]
     Active Substance: TOCILIZUMAB
     Route: 042
  19. ACTEMRA [Concomitant]
     Active Substance: TOCILIZUMAB
  20. ACTEMRA [Concomitant]
     Active Substance: TOCILIZUMAB
     Route: 058
  21. ACTEMRA [Concomitant]
     Active Substance: TOCILIZUMAB
     Route: 042
  22. ACTEMRA [Concomitant]
     Active Substance: TOCILIZUMAB
     Route: 042
  23. ACTEMRA [Concomitant]
     Active Substance: TOCILIZUMAB
  24. ACTEMRA [Concomitant]
     Active Substance: TOCILIZUMAB
  25. ADALIMUMAB [Concomitant]
     Active Substance: ADALIMUMAB
     Indication: Rheumatoid arthritis
     Route: 058
  26. ADALIMUMAB [Concomitant]
     Active Substance: ADALIMUMAB
     Route: 058
  27. ALENDRONATE SODIUM [Concomitant]
     Active Substance: ALENDRONATE SODIUM
     Indication: Rheumatoid arthritis
  28. ANAKINRA [Concomitant]
     Active Substance: ANAKINRA
     Indication: Rheumatoid arthritis
     Route: 058
  29. ANAKINRA [Concomitant]
     Active Substance: ANAKINRA
     Route: 048
  30. ANAKINRA [Concomitant]
     Active Substance: ANAKINRA
     Route: 058
  31. ANAKINRA [Concomitant]
     Active Substance: ANAKINRA
     Route: 058
  32. ANAKINRA [Concomitant]
     Active Substance: ANAKINRA
  33. ANAKINRA [Concomitant]
     Active Substance: ANAKINRA
  34. LEFLUNOMIDE [Concomitant]
     Active Substance: LEFLUNOMIDE
     Indication: Rheumatoid arthritis
     Route: 048
  35. LEFLUNOMIDE [Concomitant]
     Active Substance: LEFLUNOMIDE
  36. LEFLUNOMIDE [Concomitant]
     Active Substance: LEFLUNOMIDE
     Route: 048
  37. LEFLUNOMIDE [Concomitant]
     Active Substance: LEFLUNOMIDE
     Route: 048
  38. LEFLUNOMIDE [Concomitant]
     Active Substance: LEFLUNOMIDE
     Route: 048
  39. LEFLUNOMIDE [Concomitant]
     Active Substance: LEFLUNOMIDE
     Route: 048
  40. NAPROXEN [Concomitant]
     Active Substance: NAPROXEN
     Indication: Product used for unknown indication
  41. ARAVA [Concomitant]
     Active Substance: LEFLUNOMIDE
     Indication: Rheumatoid arthritis
     Route: 048
  42. ARAVA [Concomitant]
     Active Substance: LEFLUNOMIDE
  43. ARAVA [Concomitant]
     Active Substance: LEFLUNOMIDE
     Route: 048
  44. CELECOXIB [Concomitant]
     Active Substance: CELECOXIB
     Indication: Rheumatoid arthritis
     Route: 048
  45. CETIRIZINE HYDROCHLORIDE [Concomitant]
     Active Substance: CETIRIZINE HYDROCHLORIDE
     Indication: Rheumatoid arthritis
  46. CIMZIA [Concomitant]
     Active Substance: CERTOLIZUMAB PEGOL
     Indication: Rheumatoid arthritis
     Route: 058
  47. CIMZIA [Concomitant]
     Active Substance: CERTOLIZUMAB PEGOL
     Indication: Psoriasis
  48. CORTISONE ACETATE [Concomitant]
     Active Substance: CORTISONE ACETATE
     Indication: Product used for unknown indication
     Route: 061
  49. DESOXIMETASONE [Concomitant]
     Active Substance: DESOXIMETASONE
     Indication: Rheumatoid arthritis
     Route: 048
  50. FOLIC ACID [Concomitant]
     Active Substance: FOLIC ACID
     Indication: Rheumatoid arthritis
  51. GOLD [Concomitant]
     Active Substance: GOLD
     Indication: Product used for unknown indication
  52. HYDROXYCHLOROQUINE [Concomitant]
     Active Substance: HYDROXYCHLOROQUINE
     Indication: Rheumatoid arthritis
     Route: 048
  53. HYDROXYCHLOROQUINE [Concomitant]
     Active Substance: HYDROXYCHLOROQUINE
  54. HYDROXYCHLOROQUINE [Concomitant]
     Active Substance: HYDROXYCHLOROQUINE
     Route: 048
  55. HYDROXYCHLOROQUINE [Concomitant]
     Active Substance: HYDROXYCHLOROQUINE
  56. HYDROXYCHLOROQUINE [Concomitant]
     Active Substance: HYDROXYCHLOROQUINE
  57. HYDROXYCHLOROQUINE [Concomitant]
     Active Substance: HYDROXYCHLOROQUINE
  58. HYDROXYCHLOROQUINE [Concomitant]
     Active Substance: HYDROXYCHLOROQUINE
     Route: 048
  59. HYDROXYCHLOROQUINE [Concomitant]
     Active Substance: HYDROXYCHLOROQUINE
  60. HYDROXYCHLOROQUINE SULFATE [Concomitant]
     Active Substance: HYDROXYCHLOROQUINE SULFATE
     Indication: Rheumatoid arthritis
  61. HYDROXYCHLOROQUINE SULFATE [Concomitant]
     Active Substance: HYDROXYCHLOROQUINE SULFATE
     Route: 048
  62. HYDROXYCHLOROQUINE SULFATE [Concomitant]
     Active Substance: HYDROXYCHLOROQUINE SULFATE
  63. HYDROXYCHLOROQUINE SULFATE [Concomitant]
     Active Substance: HYDROXYCHLOROQUINE SULFATE
     Route: 048
  64. HYDROXYCHLOROQUINE SULFATE [Concomitant]
     Active Substance: HYDROXYCHLOROQUINE SULFATE
     Route: 048
  65. HYDROXYCHLOROQUINE SULFATE [Concomitant]
     Active Substance: HYDROXYCHLOROQUINE SULFATE
     Route: 048
  66. HYDROXYCHLOROQUINE SULFATE [Concomitant]
     Active Substance: HYDROXYCHLOROQUINE SULFATE
  67. HYDROXYCHLOROQUINE SULFATE [Concomitant]
     Active Substance: HYDROXYCHLOROQUINE SULFATE
  68. HYDROXYCHLOROQUINE SULFATE [Concomitant]
     Active Substance: HYDROXYCHLOROQUINE SULFATE
     Route: 048
  69. INFLIXIMAB [Concomitant]
     Active Substance: INFLIXIMAB
     Indication: Product used for unknown indication
     Route: 042
  70. INFLIXIMAB [Concomitant]
     Active Substance: INFLIXIMAB
     Route: 040
  71. LEFLUNOMIDE [Concomitant]
     Active Substance: LEFLUNOMIDE
     Indication: Rheumatoid arthritis
     Route: 048
  72. LEFLUNOMIDE [Concomitant]
     Active Substance: LEFLUNOMIDE
  73. LEFLUNOMIDE [Concomitant]
     Active Substance: LEFLUNOMIDE
     Route: 048
  74. LEFLUNOMIDE [Concomitant]
     Active Substance: LEFLUNOMIDE
     Route: 048
  75. LEFLUNOMIDE [Concomitant]
     Active Substance: LEFLUNOMIDE
  76. LEFLUNOMIDE [Concomitant]
     Active Substance: LEFLUNOMIDE
  77. METHOTREXATE [Concomitant]
     Active Substance: METHOTREXATE
     Indication: Rheumatoid arthritis
     Route: 058
  78. METHOTREXATE [Concomitant]
     Active Substance: METHOTREXATE
     Route: 058
  79. METHOTREXATE [Concomitant]
     Active Substance: METHOTREXATE
     Route: 058
  80. METHOTREXATE [Concomitant]
     Active Substance: METHOTREXATE
     Route: 058
  81. METHOTREXATE [Concomitant]
     Active Substance: METHOTREXATE
     Route: 058
  82. METHOTREXATE [Concomitant]
     Active Substance: METHOTREXATE
     Route: 048
  83. METHOTREXATE [Concomitant]
     Active Substance: METHOTREXATE
  84. METHOTREXATE [Concomitant]
     Active Substance: METHOTREXATE
  85. NAPROXEN [Concomitant]
     Active Substance: NAPROXEN
     Indication: Rheumatoid arthritis
  86. NAPROXEN [Concomitant]
     Active Substance: NAPROXEN
  87. PHTHALYLSULFATHIAZOLE [Concomitant]
     Active Substance: PHTHALYLSULFATHIAZOLE
     Indication: Rheumatoid arthritis
  88. PREDNISONE [Concomitant]
     Active Substance: PREDNISONE
     Indication: Product used for unknown indication
     Route: 048
  89. PREDNISONE [Concomitant]
     Active Substance: PREDNISONE
     Route: 048
  90. PREDNISONE [Concomitant]
     Active Substance: PREDNISONE
  91. PREDNISONE [Concomitant]
     Active Substance: PREDNISONE
     Route: 048
  92. REMICADE [Concomitant]
     Active Substance: INFLIXIMAB
     Indication: Rheumatoid arthritis
     Route: 042
  93. REMICADE [Concomitant]
     Active Substance: INFLIXIMAB
     Route: 042
  94. REMICADE [Concomitant]
     Active Substance: INFLIXIMAB
     Route: 042
  95. RISEDRONATE SODIUM [Concomitant]
     Active Substance: RISEDRONATE SODIUM
     Indication: Product used for unknown indication
  96. RISEDRONATE SODIUM [Concomitant]
     Active Substance: RISEDRONATE SODIUM
     Indication: Product used for unknown indication
  97. RISEDRONATE SODIUM [Concomitant]
     Active Substance: RISEDRONATE SODIUM
     Route: 048
  98. RISEDRONATE SODIUM [Concomitant]
     Active Substance: RISEDRONATE SODIUM
  99. RISEDRONIC ACID [Concomitant]
     Active Substance: RISEDRONIC ACID
     Indication: Product used for unknown indication
  100. RITUXIMAB [Concomitant]
     Active Substance: RITUXIMAB
     Indication: Rheumatoid arthritis
     Route: 042
  101. RITUXIMAB [Concomitant]
     Active Substance: RITUXIMAB
  102. RITUXIMAB [Concomitant]
     Active Substance: RITUXIMAB
     Route: 042
  103. RITUXIMAB [Concomitant]
     Active Substance: RITUXIMAB
     Route: 042
  104. RITUXIMAB [Concomitant]
     Active Substance: RITUXIMAB
     Route: 058
  105. RITUXIMAB [Concomitant]
     Active Substance: RITUXIMAB
     Route: 058
  106. SIMPONI [Concomitant]
     Active Substance: GOLIMUMAB
     Indication: Rheumatoid arthritis
     Route: 058
  107. SIMPONI [Concomitant]
     Active Substance: GOLIMUMAB
     Dosage: SOLUTION SUBCUTANEOUS
     Route: 058
  108. SULFASALAZINE [Concomitant]
     Active Substance: SULFASALAZINE
     Indication: Rheumatoid arthritis
     Route: 048
  109. SULFASALAZINE [Concomitant]
     Active Substance: SULFASALAZINE
  110. TOCILIZUMAB [Concomitant]
     Active Substance: TOCILIZUMAB
     Indication: Rheumatoid arthritis
     Route: 042
  111. TOCILIZUMAB [Concomitant]
     Active Substance: TOCILIZUMAB
     Route: 042
  112. TOCILIZUMAB [Concomitant]
     Active Substance: TOCILIZUMAB
     Route: 058
  113. TRIAMCINOLONE [Concomitant]
     Active Substance: TRIAMCINOLONE
     Indication: Product used for unknown indication
     Route: 014
  114. WELLBUTRIN [Concomitant]
     Active Substance: BUPROPION HYDROCHLORIDE
     Indication: Product used for unknown indication
  115. XELJANZ [Concomitant]
     Active Substance: TOFACITINIB CITRATE
     Indication: Rheumatoid arthritis
     Route: 048
  116. XELJANZ [Concomitant]
     Active Substance: TOFACITINIB CITRATE
     Route: 048
  117. ERELZI [Concomitant]
     Active Substance: ETANERCEPT-SZZS
     Indication: Rheumatoid arthritis
     Route: 058
  118. ERELZI [Concomitant]
     Active Substance: ETANERCEPT-SZZS
  119. ERELZI [Concomitant]
     Active Substance: ETANERCEPT-SZZS
     Route: 058
  120. ERELZI [Concomitant]
     Active Substance: ETANERCEPT-SZZS
     Route: 058
  121. ERELZI [Concomitant]
     Active Substance: ETANERCEPT-SZZS
     Route: 058
  122. ERELZI [Concomitant]
     Active Substance: ETANERCEPT-SZZS
     Route: 058
  123. HUMAN IMMUNOGLOBULIN G [Concomitant]
     Active Substance: HUMAN IMMUNOGLOBULIN G
     Indication: Product used for unknown indication
     Route: 042

REACTIONS (60)
  - Abdominal discomfort [Not Recovered/Not Resolved]
  - Adrenal insufficiency [Not Recovered/Not Resolved]
  - Alopecia [Not Recovered/Not Resolved]
  - Arthropathy [Not Recovered/Not Resolved]
  - Anti-cyclic citrullinated peptide antibody positive [Not Recovered/Not Resolved]
  - Arthritis [Not Recovered/Not Resolved]
  - Condition aggravated [Not Recovered/Not Resolved]
  - Diarrhoea [Not Recovered/Not Resolved]
  - Dizziness [Not Recovered/Not Resolved]
  - Drug hypersensitivity [Not Recovered/Not Resolved]
  - Drug ineffective [Not Recovered/Not Resolved]
  - Drug intolerance [Not Recovered/Not Resolved]
  - Drug tolerance [Not Recovered/Not Resolved]
  - Fatigue [Not Recovered/Not Resolved]
  - Fibromyalgia [Not Recovered/Not Resolved]
  - Foot deformity [Not Recovered/Not Resolved]
  - Limb discomfort [Not Recovered/Not Resolved]
  - Gastroenteritis viral [Not Recovered/Not Resolved]
  - Glossodynia [Not Recovered/Not Resolved]
  - Hand deformity [Not Recovered/Not Resolved]
  - Hypertension [Not Recovered/Not Resolved]
  - Hypocalcaemia [Not Recovered/Not Resolved]
  - Hypokalaemia [Not Recovered/Not Resolved]
  - Hypotension [Not Recovered/Not Resolved]
  - Ill-defined disorder [Not Recovered/Not Resolved]
  - Immunodeficiency [Not Recovered/Not Resolved]
  - Infection [Not Recovered/Not Resolved]
  - Joint destruction [Not Recovered/Not Resolved]
  - Loss of consciousness [Not Recovered/Not Resolved]
  - Loss of personal independence in daily activities [Not Recovered/Not Resolved]
  - Malaise [Not Recovered/Not Resolved]
  - Mobility decreased [Not Recovered/Not Resolved]
  - Nausea [Not Recovered/Not Resolved]
  - Nodule [Not Recovered/Not Resolved]
  - Obesity [Not Recovered/Not Resolved]
  - Oedema [Not Recovered/Not Resolved]
  - Pain [Not Recovered/Not Resolved]
  - Pemphigus [Not Recovered/Not Resolved]
  - Pleural effusion [Not Recovered/Not Resolved]
  - Polyarthritis [Not Recovered/Not Resolved]
  - Product use issue [Unknown]
  - Psoriasis [Not Recovered/Not Resolved]
  - Pulmonary fibrosis [Not Recovered/Not Resolved]
  - Pyrexia [Not Recovered/Not Resolved]
  - Red blood cell sedimentation rate abnormal [Not Recovered/Not Resolved]
  - Rheumatoid arthritis [Not Recovered/Not Resolved]
  - Rheumatoid factor positive [Not Recovered/Not Resolved]
  - Septic shock [Not Recovered/Not Resolved]
  - Swelling [Not Recovered/Not Resolved]
  - Synovitis [Not Recovered/Not Resolved]
  - Systemic lupus erythematosus [Not Recovered/Not Resolved]
  - Therapeutic product effect decreased [Not Recovered/Not Resolved]
  - Therapy non-responder [Not Recovered/Not Resolved]
  - Vomiting [Not Recovered/Not Resolved]
  - Hospitalisation [Not Recovered/Not Resolved]
  - Prescribed underdose [Unknown]
  - Abdominal pain [Not Recovered/Not Resolved]
  - Blood pressure increased [Not Recovered/Not Resolved]
  - Blood pressure decreased [Not Recovered/Not Resolved]
  - Prescribed overdose [Unknown]
